FAERS Safety Report 25013125 (Version 1)
Quarter: 2025Q1

REPORT INFORMATION
  Report Type: Spontaneous
  Country: US (occurrence: None)
  Receive Date: 20250225
  Receipt Date: 20250225
  Transmission Date: 20250408
  Serious: Yes (Hospitalization)
  Sender: FDA-CTU
  Company Number: None

PATIENT
  Age: 47 Year
  Sex: Female
  Weight: 74.3 kg

DRUGS (1)
  1. OXYCODONE [Suspect]
     Active Substance: OXYCODONE
     Indication: Anaesthesia
     Route: 048
     Dates: start: 20250131, end: 20250131

REACTIONS (3)
  - Unresponsive to stimuli [None]
  - Therapeutic product effect delayed [None]
  - Therapeutic product effect prolonged [None]

NARRATIVE: CASE EVENT DATE: 20250131
